FAERS Safety Report 7759283-2 (Version None)
Quarter: 2011Q3

REPORT INFORMATION
  Report Type: 
  Country: None (occurrence: None)
  Receive Date: 20110915
  Receipt Date: 20110907
  Transmission Date: 20111222
  Serious: Yes (Hospitalization)
  Sender: FDA-Public Use
  Company Number: MSTR-NO-1101S-0002

PATIENT
  Age: 38 Year
  Sex: Female

DRUGS (6)
  1. KETAMINE HCL [Concomitant]
  2. MORPHINE SULFATE INJ [Concomitant]
  3. ETODOLAC [Concomitant]
  4. ZOLEDRONIC ACID HYDRATE (ZOLEDRONIC ACID) [Concomitant]
  5. METASTRON [Suspect]
     Indication: METASTATIC PAIN
     Dosage: NR, SINGLE DOSE, INTRAVENOUS
     Route: 042
     Dates: start: 20090108, end: 20090108
  6. OXYCODONE HCL [Concomitant]

REACTIONS (1)
  - HAEMOGLOBIN DECREASED [None]
